FAERS Safety Report 6303817-1 (Version None)
Quarter: 2009Q3

REPORT INFORMATION
  Report Type: 
  Country: None (occurrence: None)
  Receive Date: 20090807
  Receipt Date: 20090807
  Transmission Date: 20100115
  Serious: No
  Sender: FDA-Public Use
  Company Number: None

PATIENT
  Sex: Male

DRUGS (1)
  1. METHOTREXATE [Suspect]

REACTIONS (8)
  - COAGULOPATHY [None]
  - CONVULSION [None]
  - HEPATOTOXICITY [None]
  - NAUSEA [None]
  - RENAL FAILURE ACUTE [None]
  - TREMOR [None]
  - VOMITING [None]
  - WEIGHT INCREASED [None]
